FAERS Safety Report 5514202-4 (Version None)
Quarter: 2007Q4

REPORT INFORMATION
  Report Type: 
  Country: None (occurrence: None)
  Receive Date: 20071106
  Receipt Date: 20070620
  Transmission Date: 20080405
  Serious: Yes (Death)
  Sender: FDA-Public Use
  Company Number: US200705002456

PATIENT
  Age: 15 Year
  Sex: Female

DRUGS (2)
  1. PROZAC [Suspect]
     Indication: DEPRESSION
     Dosage: 20 MG
     Dates: start: 20070201
  2. IBUPROFEN [Concomitant]

REACTIONS (5)
  - COMPLETED SUICIDE [None]
  - INSOMNIA [None]
  - TREMOR [None]
  - VICTIM OF CRIME [None]
  - VICTIM OF SEXUAL ABUSE [None]
